FAERS Safety Report 17295042 (Version 1)
Quarter: 2020Q1

REPORT INFORMATION
  Report Type: Spontaneous
  Country: IT (occurrence: IT)
  Receive Date: 20200121
  Receipt Date: 20200121
  Transmission Date: 20200409
  Serious: Yes (Hospitalization)
  Sender: FDA-Public Use
  Company Number: NVSC2020IT010494

PATIENT
  Age: 14 Year
  Sex: Male

DRUGS (2)
  1. VANCOMYCIN [Suspect]
     Active Substance: VANCOMYCIN
     Indication: OSTEOMYELITIS
     Dosage: 2 G, QD (POWDER AND SOLUTION FOR SOLUTION FOR INJECTION)
     Route: 042
     Dates: start: 20190916, end: 20190925
  2. CEFTRIAXONE. [Suspect]
     Active Substance: CEFTRIAXONE
     Indication: OSTEOMYELITIS
     Dosage: 2 G, QD
     Route: 042
     Dates: start: 20190915, end: 20190927

REACTIONS (2)
  - Rash morbilliform [Recovered/Resolved]
  - Pyrexia [Recovered/Resolved]

NARRATIVE: CASE EVENT DATE: 20190924
